FAERS Safety Report 6596399-0 (Version None)
Quarter: 2010Q1

REPORT INFORMATION
  Report Type: 
  Country: None (occurrence: None)
  Receive Date: 20100223
  Receipt Date: 20100210
  Transmission Date: 20100710
  Serious: Yes (Other)
  Sender: FDA-Public Use
  Company Number: SE-JNJFOC-20090906583

PATIENT
  Age: 27 Year
  Sex: Male

DRUGS (2)
  1. CONCERTA [Suspect]
     Indication: ATTENTION DEFICIT/HYPERACTIVITY DISORDER
     Dosage: 54+18 MG IN THE MORNING
     Route: 048
  2. DISOFROL [Concomitant]
     Indication: SEASONAL ALLERGY
     Route: 065

REACTIONS (1)
  - MAJOCCHI'S PURPURA [None]
